FAERS Safety Report 6517864-8 (Version None)
Quarter: 2009Q4

REPORT INFORMATION
  Report Type: 
  Country: None (occurrence: None)
  Receive Date: 20091224
  Receipt Date: 20091214
  Transmission Date: 20100525
  Serious: Yes (Life-Threatening, Hospitalization)
  Sender: FDA-Public Use
  Company Number: PL-SANOFI-AVENTIS-2009SA000441

PATIENT
  Age: 31 Year
  Sex: Female
  Weight: 69 kg

DRUGS (3)
  1. LOKREN [Suspect]
     Indication: HEART RATE ABNORMAL
     Route: 048
     Dates: start: 20080101
  2. ACENOCOUMAROL [Concomitant]
     Indication: THROMBOSIS PROPHYLAXIS
     Dosage: 4-6 MG DAILY.
     Route: 048
     Dates: start: 20060101, end: 20091001
  3. SINTROM [Concomitant]
     Indication: THROMBOSIS PROPHYLAXIS
     Dosage: 2-3 MG DAILY
     Route: 048
     Dates: start: 20091001

REACTIONS (1)
  - CARDIAC VALVE REPLACEMENT COMPLICATION [None]
